FAERS Safety Report 5745723-7 (Version None)
Quarter: 2008Q2

REPORT INFORMATION
  Report Type: 
  Country: None (occurrence: None)
  Receive Date: 20080519
  Receipt Date: 20080331
  Transmission Date: 20081010
  Serious: No
  Sender: FDA-Public Use
  Company Number: TPA2008A00318

PATIENT
  Age: 77 Year
  Sex: Male
  Weight: 77.1115 kg

DRUGS (11)
  1. ROZEREM [Suspect]
     Indication: INITIAL INSOMNIA
     Dosage: 8 MG, QHS, PER ORAL
     Route: 048
     Dates: start: 20080310
  2. ZESTRIL [Concomitant]
  3. K CHLOR (POTASSIUM CHLORIDE) [Concomitant]
  4. NORVASC [Concomitant]
  5. LASIX [Concomitant]
  6. TOPROL-XL [Concomitant]
  7. COUMADIN [Concomitant]
  8. TRICOR [Concomitant]
  9. ZETIA [Concomitant]
  10. INSPRA [Concomitant]
  11. AMIODARONE HCL [Concomitant]

REACTIONS (1)
  - MIDDLE INSOMNIA [None]
